FAERS Safety Report 17096193 (Version 1)
Quarter: 2019Q4

REPORT INFORMATION
  Report Type: Spontaneous
  Country: US (occurrence: US)
  Receive Date: 20191202
  Receipt Date: 20191202
  Transmission Date: 20200122
  Serious: Yes (Other)
  Sender: FDA-Public Use
  Company Number: US-IBIGEN-2019.07688

PATIENT
  Age: 29 Year
  Sex: Female

DRUGS (1)
  1. PIPERACILLIN AND TAZOBACTAM [Suspect]
     Active Substance: PIPERACILLIN SODIUM\TAZOBACTAM SODIUM
     Indication: LEPTOSPIROSIS
     Dosage: FIRST DOSE ; IN TOTAL??????

REACTIONS (1)
  - Jarisch-Herxheimer reaction [Recovered/Resolved]
